FAERS Safety Report 25048305 (Version 1)
Quarter: 2025Q1

REPORT INFORMATION
  Report Type: Spontaneous
  Country: US (occurrence: US)
  Receive Date: 20250307
  Receipt Date: 20250307
  Transmission Date: 20250409
  Serious: No
  Sender: ROCHE
  Company Number: US-ROCHE-10000223469

PATIENT
  Age: 40 Year
  Sex: Female

DRUGS (2)
  1. OCREVUS [Suspect]
     Active Substance: OCRELIZUMAB
     Indication: Relapsing-remitting multiple sclerosis
     Route: 042
  2. OCREVUS ZUNOVO [Suspect]
     Active Substance: HYALURONIDASE-OCSQ\OCRELIZUMAB
     Indication: Relapsing-remitting multiple sclerosis
     Route: 058
     Dates: start: 20250213

REACTIONS (3)
  - Flushing [Not Recovered/Not Resolved]
  - Urticaria [Not Recovered/Not Resolved]
  - Hypoaesthesia [Not Recovered/Not Resolved]
